FAERS Safety Report 8411947-3 (Version None)
Quarter: 2012Q2

REPORT INFORMATION
  Report Type: 
  Country: None (occurrence: None)
  Receive Date: 20120605
  Receipt Date: 20120516
  Transmission Date: 20120825
  Serious: No
  Sender: FDA-Public Use
  Company Number: US-AMGEN-USASP2012031146

PATIENT
  Age: 40 Year
  Sex: Female

DRUGS (1)
  1. ENBREL [Suspect]
     Indication: RHEUMATOID ARTHRITIS
     Dosage: 50 MG, QWK
     Dates: start: 20120430

REACTIONS (9)
  - SINUS CONGESTION [None]
  - INJECTION SITE ERYTHEMA [None]
  - COUGH [None]
  - PTERYGIUM [None]
  - HYPERSENSITIVITY [None]
  - INJECTION SITE REACTION [None]
  - INJECTION SITE MACULE [None]
  - INJECTION SITE SWELLING [None]
  - INJECTION SITE WARMTH [None]
